FAERS Safety Report 8036212-8 (Version None)
Quarter: 2012Q1

REPORT INFORMATION
  Report Type: 
  Country: None (occurrence: None)
  Receive Date: 20120111
  Receipt Date: 20120103
  Transmission Date: 20120608
  Serious: Yes (Hospitalization, Other)
  Sender: FDA-Public Use
  Company Number: PHHY2009BR45555

PATIENT
  Sex: Female
  Weight: 49.5 kg

DRUGS (10)
  1. HYGROTON [Suspect]
     Indication: FLUID RETENTION
  2. FORMOTEROL FUMARATE [Suspect]
     Dosage: 1 DF, DAILY 12/400 UG
     Dates: end: 20091017
  3. FORMOTEROL FUMARATE [Suspect]
     Dosage: 2 DF,  12/200 UG DAILY 1 INHALATION AT 10AM AND ANOTHER ONE AT 8PM
     Route: 048
     Dates: start: 20100801
  4. BISOPROLOL FUMARATE [Concomitant]
  5. SOMALGIN [Concomitant]
  6. LIPITOR [Concomitant]
     Indication: HYPERCHOLESTEROLAEMIA
  7. COZAAR [Concomitant]
     Indication: CARDIAC DISORDER
     Route: 048
  8. HYGROTON [Suspect]
     Indication: OEDEMA PERIPHERAL
     Dosage: 12.5 MG, 1 TABLET PER DAY
     Route: 048
  9. LEVOTHYROXINE SODIUM [Concomitant]
     Indication: HYPOTHYROIDISM
     Route: 048
  10. FORMOTEROL FUMARATE [Suspect]
     Indication: EMPHYSEMA
     Dosage: 12/200 MCG, 1 CAPSULE Q12H

REACTIONS (10)
  - DYSPNOEA [None]
  - FATIGUE [None]
  - HYPERSENSITIVITY [None]
  - EMPHYSEMA [None]
  - ERYTHEMA [None]
  - SKIN IRRITATION [None]
  - SKIN HYPERTROPHY [None]
  - PRURITUS [None]
  - WOUND [None]
  - WOUND HAEMORRHAGE [None]
